FAERS Safety Report 9748257 (Version 1)
Quarter: 2013Q4

REPORT INFORMATION
  Report Type: Spontaneous
  Country: US (occurrence: None)
  Receive Date: 20131211
  Receipt Date: 20131211
  Transmission Date: 20140711
  Serious: Yes (Hospitalization)
  Sender: FDA-Public Use
  Company Number: None

PATIENT
  Age: 67 Year
  Sex: Male
  Weight: 115.67 kg

DRUGS (1)
  1. IRBESARTAN-HCTZ (UNKNOWN) [Suspect]
     Indication: HYPERTENSION
     Route: 048
     Dates: start: 20131201, end: 20131203

REACTIONS (3)
  - Medication error [None]
  - Blood pressure increased [None]
  - Blood pressure inadequately controlled [None]
